FAERS Safety Report 13290352 (Version 1)
Quarter: 2017Q1

REPORT INFORMATION
  Report Type: Spontaneous
  Country: US (occurrence: US)
  Receive Date: 20170303
  Receipt Date: 20170303
  Transmission Date: 20170428
  Serious: Yes (Death)
  Sender: FDA-Public Use
  Company Number: US-ROCHE-1901477

PATIENT
  Sex: Female

DRUGS (6)
  1. BUSPIRONE HCL [Concomitant]
     Active Substance: BUSPIRONE HYDROCHLORIDE
  2. CALCIUM CITRATE WITH VITAMIN D3 [Concomitant]
  3. ACETAMINOPHEN/HYDROCODONE [Concomitant]
     Active Substance: ACETAMINOPHEN\HYDROCODONE
  4. ERIVEDGE [Suspect]
     Active Substance: VISMODEGIB
     Indication: HEAD AND NECK CANCER
     Route: 048
     Dates: start: 20161109
  5. FUROSEMIDE. [Concomitant]
     Active Substance: FUROSEMIDE
  6. DOCUSATE SODIUM. [Concomitant]
     Active Substance: DOCUSATE SODIUM

REACTIONS (1)
  - Death [Fatal]
